FAERS Safety Report 13008476 (Version 1)
Quarter: 2016Q4

REPORT INFORMATION
  Report Type: Report from Study
  Country: US (occurrence: US)
  Receive Date: 20161208
  Receipt Date: 20161208
  Transmission Date: 20170207
  Serious: Yes (Other)
  Sender: FDA-Public Use
  Company Number: US-AMGEN-USASL2016172424

PATIENT
  Age: 67 Year
  Sex: Male

DRUGS (1)
  1. ENBREL [Suspect]
     Active Substance: ETANERCEPT
     Indication: RHEUMATOID ARTHRITIS
     Dosage: 25 MG, UNK
     Route: 065
     Dates: start: 201611

REACTIONS (8)
  - Inflammation [Unknown]
  - Tenderness [Not Recovered/Not Resolved]
  - Cellulitis [Unknown]
  - Macule [Unknown]
  - Skin discolouration [Unknown]
  - Erythema [Recovering/Resolving]
  - Intentional product misuse [Unknown]
  - Oedema peripheral [Unknown]

NARRATIVE: CASE EVENT DATE: 201611
